FAERS Safety Report 9860145 (Version 1)
Quarter: 2014Q1

REPORT INFORMATION
  Report Type: Spontaneous
  Country: DE (occurrence: DE)
  Receive Date: 20140201
  Receipt Date: 20140201
  Transmission Date: 20141002
  Serious: Yes (Other)
  Sender: FDA-Public Use
  Company Number: DE-ROCHE-1341538

PATIENT
  Age: 72 Year
  Sex: Male

DRUGS (5)
  1. MABTHERA [Suspect]
     Indication: PRODUCT USED FOR UNKNOWN INDICATION
     Dosage: AT LEAST 4 CYCLES
     Route: 065
  2. CYCLOPHOSPHAMIDE [Suspect]
     Indication: PRODUCT USED FOR UNKNOWN INDICATION
     Dosage: AT LEAST 4 CYCLES
     Route: 065
  3. VINCRISTINE [Suspect]
     Indication: PRODUCT USED FOR UNKNOWN INDICATION
     Dosage: AT LEAST 4 CYCLES
     Route: 065
  4. PREDNISONE [Suspect]
     Indication: PRODUCT USED FOR UNKNOWN INDICATION
     Dosage: AT LEAST 4 CYCLES
     Route: 065
  5. DOXORUBICIN [Suspect]
     Indication: PRODUCT USED FOR UNKNOWN INDICATION
     Dosage: AT LEAST 4 CYCLES
     Route: 065

REACTIONS (2)
  - Interstitial lung disease [Unknown]
  - Pulmonary fibrosis [Unknown]
